FAERS Safety Report 9365233 (Version 2)
Quarter: 2013Q3

REPORT INFORMATION
  Report Type: Report from Study
  Country: US (occurrence: US)
  Receive Date: 20130624
  Receipt Date: 20130926
  Transmission Date: 20140515
  Serious: Yes (Hospitalization, Other)
  Sender: FDA-Public Use
  Company Number: US-ROCHE-1240904

PATIENT
  Age: 54 Year
  Sex: Female
  Weight: 184.32 kg

DRUGS (3)
  1. CELLCEPT [Suspect]
     Indication: MYASTHENIA GRAVIS
     Route: 048
  2. CELLCEPT [Suspect]
     Route: 048
     Dates: start: 20120126, end: 201210
  3. MESTINON [Concomitant]
     Indication: MYASTHENIA GRAVIS
     Route: 048
     Dates: start: 20111117

REACTIONS (2)
  - Brain abscess [Recovering/Resolving]
  - Central nervous system lesion [Unknown]
